FAERS Safety Report 7412707-2 (Version None)
Quarter: 2011Q2

REPORT INFORMATION
  Report Type: 
  Country: None (occurrence: None)
  Receive Date: 20110413
  Receipt Date: 20100303
  Transmission Date: 20111010
  Serious: Yes (Hospitalization)
  Sender: FDA-Public Use
  Company Number: A0849030A

PATIENT
  Sex: Female

DRUGS (1)
  1. AVANDIA [Suspect]
     Dosage: 8MG PER DAY
     Route: 048
     Dates: start: 20040518, end: 20060313

REACTIONS (9)
  - CARDIAC FAILURE CONGESTIVE [None]
  - INSOMNIA [None]
  - OEDEMA [None]
  - GENERAL PHYSICAL HEALTH DETERIORATION [None]
  - MYOCARDIAL ISCHAEMIA [None]
  - MOBILITY DECREASED [None]
  - CARDIOVASCULAR DISORDER [None]
  - DYSPNOEA [None]
  - OEDEMA PERIPHERAL [None]
